FAERS Safety Report 5018060-6 (Version None)
Quarter: 2006Q2

REPORT INFORMATION
  Report Type: 
  Country: None (occurrence: None)
  Receive Date: 20060530
  Receipt Date: 20050114
  Transmission Date: 20061013
  Serious: Yes (Hospitalization, Other)
  Sender: FDA-Public Use
  Company Number: 2005013713

PATIENT
  Age: 41 Year
  Sex: Male
  Weight: 112 kg

DRUGS (6)
  1. LYRICA [Suspect]
     Indication: PAIN
     Dosage: 600 MG (1 IN 1 D), ORAL
     Route: 048
     Dates: start: 20050103
  2. OXYCODONE (OXYCODONE) [Suspect]
     Indication: PAIN
     Dosage: 80 MG, ORAL
     Route: 048
     Dates: start: 20050103, end: 20050114
  3. OXYCODONE HCL [Concomitant]
  4. MIRTAZAPINE [Concomitant]
  5. GLUCOPHAGE [Concomitant]
  6. REPAGLINIDE [Concomitant]

REACTIONS (5)
  - CHILLS [None]
  - DEPRESSED LEVEL OF CONSCIOUSNESS [None]
  - DYSPNOEA [None]
  - PYREXIA [None]
  - TREMOR [None]
